FAERS Safety Report 8318431-6 (Version None)
Quarter: 2012Q2

REPORT INFORMATION
  Report Type: 
  Country: None (occurrence: None)
  Receive Date: 20120427
  Receipt Date: 20120419
  Transmission Date: 20120825
  Serious: Yes (Hospitalization)
  Sender: FDA-Public Use
  Company Number: US-GLAXOSMITHKLINE-A0887664A

PATIENT
  Age: 48 Year
  Sex: Male

DRUGS (2)
  1. AVANDAMET [Suspect]
     Indication: DIABETES MELLITUS
     Route: 048
     Dates: start: 20051117, end: 20051129
  2. AVANDIA [Suspect]
     Indication: DIABETES MELLITUS
     Dosage: 4MG FOUR TIMES PER DAY
     Route: 048
     Dates: start: 20051129, end: 20071220

REACTIONS (4)
  - MYOCARDIAL INFARCTION [None]
  - MYOCARDIAL ISCHAEMIA [None]
  - HYPERLIPIDAEMIA [None]
  - CORONARY ARTERIAL STENT INSERTION [None]
